FAERS Safety Report 4313673-9 (Version None)
Quarter: 2004Q1

REPORT INFORMATION
  Report Type: 
  Country: None (occurrence: None)
  Receive Date: 20040305
  Receipt Date: 20040227
  Transmission Date: 20041129
  Serious: Yes (Death)
  Sender: FDA-Public Use
  Company Number: NSADSS2002033481

PATIENT
  Age: 51 Year
  Sex: Male

DRUGS (7)
  1. DURAGESIC [Suspect]
     Indication: PAIN
     Dosage: 150 UG/HR TRANSDERMAL
     Route: 062
  2. PREDNISONE [Concomitant]
  3. OXYCONTIN [Concomitant]
  4. CLONAZEPAM [Concomitant]
  5. SYNTHROID [Concomitant]
  6. BACTRIM [Concomitant]
  7. FOLATE CREAM (FOLATE SODIUM) [Concomitant]

REACTIONS (21)
  - ABDOMINAL TENDERNESS [None]
  - ASPARTATE AMINOTRANSFERASE INCREASED [None]
  - BLOOD AMYLASE ABNORMAL [None]
  - BLOOD BILIRUBIN INCREASED [None]
  - BLOOD CREATINE PHOSPHOKINASE INCREASED [None]
  - BLOOD CREATININE INCREASED [None]
  - BLOOD PRESSURE INCREASED [None]
  - BLOOD UREA INCREASED [None]
  - CLONUS [None]
  - DRUG SCREEN POSITIVE [None]
  - ECCHYMOSIS [None]
  - ELECTROCARDIOGRAM ST SEGMENT DEPRESSION [None]
  - ENCEPHALITIS [None]
  - EXTENSOR PLANTAR RESPONSE [None]
  - HYPERREFLEXIA [None]
  - MENTAL STATUS CHANGES [None]
  - PULSE ABSENT [None]
  - TACHYCARDIA [None]
  - TROPONIN INCREASED [None]
  - URINARY TRACT INFECTION [None]
  - UROSEPSIS [None]
